FAERS Safety Report 16985449 (Version 1)
Quarter: 2019Q4

REPORT INFORMATION
  Report Type: Spontaneous
  Country: IT (occurrence: IT)
  Receive Date: 20191101
  Receipt Date: 20191101
  Transmission Date: 20200122
  Serious: Yes (Other)
  Sender: FDA-Public Use
  Company Number: IT-SA-2019SA298875

PATIENT
  Age: 3 Year
  Sex: Female

DRUGS (1)
  1. STILNOX [Suspect]
     Active Substance: ZOLPIDEM TARTRATE
     Dosage: ACCIDENTAL INTAKE OF STILNOX INDICATIVE QUANTITY OF 5 MG
     Route: 065

REACTIONS (2)
  - Neurological symptom [Unknown]
  - Drug abuse [Unknown]

NARRATIVE: CASE EVENT DATE: 20190715
